FAERS Safety Report 7335922-5 (Version None)
Quarter: 2011Q1

REPORT INFORMATION
  Report Type: 
  Country: None (occurrence: None)
  Receive Date: 20110307
  Receipt Date: 20110125
  Transmission Date: 20110831
  Serious: Yes (Other)
  Sender: FDA-Public Use
  Company Number: FR-TEVA-267927ISR

PATIENT
  Sex: Male

DRUGS (3)
  1. BLOPRESS PLUS (CANDESARTAN, HYDROCHLOROTHIAZIDE) [Concomitant]
     Dosage: UNIT DOSE: 16 MG/12,5 MG
  2. LOPERAMIDE [Suspect]
     Indication: DIARRHOEA
     Dosage: 18 TO 24MG DAILY
     Route: 048
  3. LERCANIDIPINE HYDROCHLORIDE [Concomitant]

REACTIONS (3)
  - DRUG DEPENDENCE [None]
  - INTENTIONAL DRUG MISUSE [None]
  - INCORRECT DOSE ADMINISTERED [None]
